FAERS Safety Report 9074929 (Version 2)
Quarter: 2013Q1

REPORT INFORMATION
  Report Type: Spontaneous
  Country: US (occurrence: US)
  Receive Date: 20130129
  Receipt Date: 20130304
  Transmission Date: 20140127
  Serious: Yes (Hospitalization, Other)
  Sender: FDA-Public Use
  Company Number: US-BAYER-2013-006479

PATIENT
  Sex: Male

DRUGS (8)
  1. BETAPACE AF [Suspect]
     Indication: ATRIAL FIBRILLATION
     Dosage: 40 MG, BID
     Dates: start: 2011
  2. BETAPACE AF [Suspect]
     Indication: PALPITATIONS
  3. SOTALOL [Suspect]
     Indication: HEART RATE IRREGULAR
     Dosage: 80 MG, UNK
  4. CARDIZEM [Concomitant]
  5. COZAAR [Concomitant]
     Indication: HYPERTENSION
     Dosage: 50 MG, BID
  6. FLOMAX [Concomitant]
     Indication: BENIGN PROSTATIC HYPERPLASIA
     Dosage: 0.4 MG, UNK
  7. SYNTHROID [Concomitant]
     Indication: THYROID DISORDER
     Dosage: 50 MCG/24HR, UNK
  8. CRESTOR [Concomitant]
     Indication: BLOOD CHOLESTEROL INCREASED
     Dosage: 10 MG, QD

REACTIONS (2)
  - Atrial fibrillation [None]
  - Atrial fibrillation [None]
